FAERS Safety Report 19407768 (Version 1)
Quarter: 2021Q2

REPORT INFORMATION
  Report Type: Spontaneous
  Country: FR (occurrence: FR)
  Receive Date: 20210611
  Receipt Date: 20210611
  Transmission Date: 20210717
  Serious: Yes (Life-Threatening, Hospitalization, Other)
  Sender: FDA-Public Use
  Company Number: FR-TEVA-2021-FR-1920633

PATIENT
  Age: 39 Year
  Sex: Male
  Weight: 85 kg

DRUGS (2)
  1. LOXAPINE BASE [Concomitant]
     Active Substance: LOXAPINE
     Indication: MANIA
     Dosage: 100 MG
     Route: 048
     Dates: start: 20210329, end: 20210409
  2. RISPERIDONE. [Suspect]
     Active Substance: RISPERIDONE
     Indication: MANIA
     Dosage: 8 MG
     Route: 048
     Dates: start: 20210329, end: 20210409

REACTIONS (2)
  - Colitis ischaemic [Recovered/Resolved with Sequelae]
  - Neuroleptic malignant syndrome [Recovered/Resolved]

NARRATIVE: CASE EVENT DATE: 20210409
